FAERS Safety Report 9374369 (Version 2)
Quarter: 2013Q3

REPORT INFORMATION
  Report Type: Report from Study
  Country: US (occurrence: US)
  Receive Date: 20130628
  Receipt Date: 20130913
  Transmission Date: 20140515
  Serious: Yes (Hospitalization, Other)
  Sender: FDA-Public Use
  Company Number: PHEH2013US013845

PATIENT
  Sex: Male
  Weight: 88.89 kg

DRUGS (12)
  1. GLEEVEC [Suspect]
     Indication: GASTROINTESTINAL STROMAL TUMOUR
     Dosage: 400 MG, QD
     Route: 048
     Dates: start: 201306
  2. GLEEVEC [Suspect]
     Dosage: 400 MG, DAILY
     Dates: start: 200302, end: 201106
  3. GLEEVEC [Suspect]
     Dosage: 400 MG, DAILY
     Dates: start: 201301
  4. MULTIVITAMINS [Concomitant]
     Dosage: UNK UKN, UNK
  5. ZOLOFT [Concomitant]
     Dosage: UNK UKN, UNK
  6. OMEGA 3 [Concomitant]
     Dosage: UNK UKN, UNK
  7. GLUCOSAMINE [Concomitant]
     Dosage: UNK UKN, UNK
  8. CHONDROITIN [Concomitant]
     Dosage: UNK UKN, UNK
  9. VITAMIN B12 [Concomitant]
     Dosage: UNK UKN, UNK
  10. VITAMIN B12 [Concomitant]
     Dosage: 1000 UG, EVERY FOUR WEEKS
  11. IRON [Concomitant]
     Dosage: UNK UKN, UNK
  12. SERTRALINE [Concomitant]
     Dosage: 25 MG, EVERY OTHER DAY

REACTIONS (16)
  - Salmonellosis [Not Recovered/Not Resolved]
  - Renal cyst [Unknown]
  - Pulmonary mass [Unknown]
  - Gastrointestinal stromal tumour [Unknown]
  - Malignant neoplasm progression [Unknown]
  - Metastases to liver [Unknown]
  - Second primary malignancy [Unknown]
  - Depression [Unknown]
  - Vitamin B12 deficiency [Unknown]
  - Sleep apnoea syndrome [Unknown]
  - Insomnia [Unknown]
  - Hypertension [Unknown]
  - Gastroenteritis [Unknown]
  - Haemoglobin decreased [Recovering/Resolving]
  - Blood pressure systolic increased [Unknown]
  - Iron deficiency [Recovered/Resolved]
